FAERS Safety Report 4673217-9 (Version None)
Quarter: 2005Q2

REPORT INFORMATION
  Report Type: 
  Country: None (occurrence: None)
  Receive Date: 20050523
  Receipt Date: 20050523
  Transmission Date: 20051028
  Serious: Yes (Other)
  Sender: FDA-Public Use
  Company Number: None

PATIENT
  Sex: Male
  Weight: 87.9978 kg

DRUGS (2)
  1. AUGMENTIN '875' [Suspect]
     Indication: SINUSITIS
     Dosage: 875 MG BID PO
     Route: 048
     Dates: start: 20050401
  2. RHINOCEPT [Concomitant]

REACTIONS (4)
  - HEPATITIS CHOLESTATIC [None]
  - INTERNATIONAL NORMALISED RATIO DECREASED [None]
  - PROTHROMBIN TIME SHORTENED [None]
  - PRURITUS [None]
